FAERS Safety Report 10788824 (Version 3)
Quarter: 2015Q1

REPORT INFORMATION
  Report Type: Report from Study
  Country: US (occurrence: US)
  Receive Date: 20150212
  Receipt Date: 20150305
  Transmission Date: 20150721
  Serious: Yes (Hospitalization)
  Sender: FDA-Public Use
  Company Number: US-ASTELLAS-2015US004174

PATIENT
  Age: 75 Year
  Sex: Male

DRUGS (53)
  1. LEVAQUIN [Concomitant]
     Active Substance: LEVOFLOXACIN
     Indication: ANTIBIOTIC PROPHYLAXIS
     Dosage: 500-MG-QD
     Route: 048
     Dates: start: 20141217
  2. VANCOMYCIN [Concomitant]
     Active Substance: VANCOMYCIN
     Indication: CELLULITIS
  3. ACYCLOVIR                          /00587301/ [Concomitant]
     Active Substance: ACYCLOVIR
     Indication: ANTIVIRAL PROPHYLAXIS
     Dosage: 400-MG-BID
     Route: 048
     Dates: start: 20150115
  4. BENADRYL [Concomitant]
     Active Substance: DIPHENHYDRAMINE HYDROCHLORIDE
     Dosage: 25-MG-QD
     Route: 042
     Dates: start: 20150118, end: 20150119
  5. CYTOXAN [Concomitant]
     Active Substance: CYCLOPHOSPHAMIDE
     Indication: CHEMOTHERAPY
  6. LOMOTIL [Concomitant]
     Active Substance: ATROPINE SULFATE\DIPHENOXYLATE HYDROCHLORIDE
     Indication: DIARRHOEA
     Dosage: 1-CAPSULE-PRN
     Route: 048
     Dates: start: 20150125
  7. INVANZ [Concomitant]
     Active Substance: ERTAPENEM SODIUM
     Indication: ESCHERICHIA INFECTION
  8. ZOFRAN                             /00955301/ [Concomitant]
     Active Substance: ONDANSETRON HYDROCHLORIDE
     Indication: NAUSEA
     Dosage: 8-MG-PRN
     Route: 048
     Dates: start: 20141217
  9. PRAVACHOL [Concomitant]
     Active Substance: PRAVASTATIN SODIUM
     Indication: HYPERCHOLESTEROLAEMIA
     Dosage: 80-MG-QD
     Route: 048
     Dates: start: 20150109
  10. IMODIUM [Concomitant]
     Active Substance: LOPERAMIDE HYDROCHLORIDE
     Indication: DIARRHOEA
     Dosage: 1-CAPSULE-PRN
     Route: 048
     Dates: start: 20150119
  11. CENTRUM SILVER                     /02363801/ [Concomitant]
     Active Substance: VITAMINS
     Indication: ROUTINE HEALTH MAINTENANCE
     Dosage: 1-TABLET-QD
     Route: 048
     Dates: start: 20140512
  12. ATIVAN [Concomitant]
     Active Substance: LORAZEPAM
     Indication: PREMEDICATION
     Dosage: 1-MG-ONCE
     Route: 042
     Dates: start: 20150115, end: 20150115
  13. ATIVAN [Concomitant]
     Active Substance: LORAZEPAM
     Indication: NAUSEA
     Dosage: 0.5-MG-QD
     Route: 042
     Dates: start: 20150118, end: 20150119
  14. MESNA. [Concomitant]
     Active Substance: MESNA
     Indication: CHEMOTHERAPY
     Dosage: 370-MG-ONCE
     Route: 042
     Dates: start: 20150118, end: 20150118
  15. INVANZ [Concomitant]
     Active Substance: ERTAPENEM SODIUM
     Indication: URINARY TRACT INFECTION
  16. ZOFRAN                             /00955301/ [Concomitant]
     Active Substance: ONDANSETRON HYDROCHLORIDE
     Indication: PREMEDICATION
     Dosage: 8-MG-ONCE
     Route: 042
     Dates: start: 20150114, end: 20150114
  17. FISH OIL [Concomitant]
     Active Substance: FISH OIL
     Indication: ROUTINE HEALTH MAINTENANCE
     Dosage: 1000-MG-QD
     Route: 048
     Dates: start: 20141030
  18. PROGRAF [Suspect]
     Active Substance: TACROLIMUS\TACROLIMUS ANHYDROUS
     Indication: IMMUNOSUPPRESSION
     Dosage: 5 MG, QD
     Route: 050
     Dates: start: 20150120
  19. COMPAZINE [Concomitant]
     Active Substance: PROCHLORPERAZINE MALEATE
     Indication: VOMITING
  20. ULTRAM [Concomitant]
     Active Substance: TRAMADOL HYDROCHLORIDE
     Indication: PAIN
     Dosage: 50-MG-PRN
     Route: 048
     Dates: start: 20141217
  21. RANITIDINE [Concomitant]
     Active Substance: RANITIDINE\RANITIDINE HYDROCHLORIDE
     Indication: GASTROOESOPHAGEAL REFLUX PROPHYLAXIS
     Dosage: 300-MG-QHS
     Route: 048
     Dates: start: 20150109
  22. PEPCID [Concomitant]
     Active Substance: FAMOTIDINE
     Indication: PREMEDICATION
  23. TYLENOL [Concomitant]
     Active Substance: ACETAMINOPHEN
     Indication: PREMEDICATION
     Dosage: 650-MG-ONCE
     Route: 048
     Dates: start: 20150115, end: 20150115
  24. COLACE [Concomitant]
     Active Substance: DOCUSATE SODIUM
     Indication: CONSTIPATION
     Dosage: 100-MG-PRN
     Route: 048
     Dates: start: 20141030
  25. CELLCEPT [Concomitant]
     Active Substance: MYCOPHENOLATE MOFETIL\MYCOPHENOLATE MOFETIL HYDROCHLORIDE
     Indication: IMMUNOSUPPRESSION
     Dosage: 1000-MG-TID
     Route: 048
     Dates: start: 20150120
  26. NOXAFIL [Concomitant]
     Active Substance: POSACONAZOLE
     Indication: ANTIFUNGAL PROPHYLAXIS
     Dosage: 300-MG-BID
     Route: 048
     Dates: start: 20150120, end: 20150120
  27. KLOR-CON [Concomitant]
     Active Substance: POTASSIUM CHLORIDE
     Indication: PROPHYLAXIS
     Dosage: 20-MEQ-BID
     Route: 048
     Dates: start: 20150120
  28. MAGNESIUM SULFATE. [Concomitant]
     Active Substance: MAGNESIUM SULFATE
     Indication: HYPOMAGNESAEMIA
     Dosage: 4000-MG-PRN
     Route: 042
     Dates: start: 20150125
  29. MICAFUNGIN [Suspect]
     Active Substance: MICAFUNGIN
     Indication: ANTIFUNGAL PROPHYLAXIS
     Dosage: 100 MG, QD
     Route: 042
     Dates: start: 20150109, end: 20150119
  30. COMPAZINE [Concomitant]
     Active Substance: PROCHLORPERAZINE MALEATE
     Indication: NAUSEA
     Dosage: 10-MG-PRN
     Route: 048
     Dates: start: 20141217
  31. ZOFRAN                             /00955301/ [Concomitant]
     Active Substance: ONDANSETRON HYDROCHLORIDE
     Indication: VOMITING
     Dosage: 8-MG-QD
     Route: 042
     Dates: start: 20150118, end: 20150119
  32. VANCOMYCIN [Concomitant]
     Active Substance: VANCOMYCIN
     Indication: CELLULITIS
     Dosage: 1000-MG-QD
     Route: 042
     Dates: start: 20141222
  33. LASIX [Concomitant]
     Active Substance: FUROSEMIDE
     Indication: OEDEMA PERIPHERAL
     Dosage: 40-MG-PRN
     Route: 042
     Dates: start: 20150112
  34. ATIVAN [Concomitant]
     Active Substance: LORAZEPAM
     Indication: VOMITING
  35. INVANZ [Concomitant]
     Active Substance: ERTAPENEM SODIUM
     Indication: ESCHERICHIA INFECTION
  36. MIRALAX [Concomitant]
     Active Substance: POLYETHYLENE GLYCOL 3350
     Indication: CONSTIPATION
     Dosage: 17-G-PRN
     Route: 048
     Dates: start: 20141030
  37. COLCHICINE. [Concomitant]
     Active Substance: COLCHICINE
     Indication: GOUT
     Dosage: 0.6-MG-BID
     Route: 048
     Dates: start: 20141217
  38. BLINDED FIDAXOMICIN [Suspect]
     Active Substance: FIDAXOMICIN
     Indication: PROPHYLAXIS
     Dosage: UNK UNK, 1 TABLET, QD
     Route: 048
     Dates: start: 20150109, end: 20150218
  39. AVODART [Concomitant]
     Active Substance: DUTASTERIDE
     Indication: BENIGN PROSTATIC HYPERPLASIA
     Dosage: 0.5-MG-QHS
     Route: 048
     Dates: start: 20120101
  40. PEPCID [Concomitant]
     Active Substance: FAMOTIDINE
     Indication: PREMEDICATION
     Dosage: 20-MG-ONCE
     Route: 048
     Dates: start: 20150115, end: 20150115
  41. BENADRYL [Concomitant]
     Active Substance: DIPHENHYDRAMINE HYDROCHLORIDE
     Indication: PREMEDICATION
     Dosage: 25-MG-ONCE
     Route: 042
     Dates: start: 20150115, end: 20150115
  42. ATIVAN [Concomitant]
     Active Substance: LORAZEPAM
     Indication: VOMITING
     Dosage: 0.5-MG-PRN
     Route: 048
     Dates: start: 20150121
  43. ATIVAN [Concomitant]
     Active Substance: LORAZEPAM
     Indication: PREMEDICATION
  44. CYTOXAN [Concomitant]
     Active Substance: CYCLOPHOSPHAMIDE
     Indication: CHEMOTHERAPY
     Dosage: 3700-MG-QD
     Route: 042
     Dates: start: 20150118, end: 20150119
  45. FILGRASTIM [Concomitant]
     Active Substance: FILGRASTIM
     Indication: NEUTROPENIA
     Dosage: 480-MCG-QD
     Route: 058
     Dates: start: 20150120
  46. POTASSIUM CHLORIDE. [Suspect]
     Active Substance: POTASSIUM CHLORIDE
     Indication: HYPOKALAEMIA
     Dosage: 40 MEQ, PRN
     Route: 042
     Dates: start: 20150117
  47. NEUTRASAL                          /06572101/ [Concomitant]
     Indication: PROPHYLAXIS
     Dosage: 538-MG-QID
     Route: 048
     Dates: start: 20150109
  48. FLUDARABINE [Concomitant]
     Active Substance: FLUDARABINE PHOSPHATE
     Indication: CHEMOTHERAPY
     Dosage: 66-MG-QD
     Route: 042
     Dates: start: 20150109, end: 20150113
  49. ATIVAN [Concomitant]
     Active Substance: LORAZEPAM
     Indication: NAUSEA
  50. MESNA. [Concomitant]
     Active Substance: MESNA
     Dosage: 2600-MG-QD
     Route: 042
     Dates: start: 20150118, end: 20150119
  51. NOXAFIL [Concomitant]
     Active Substance: POSACONAZOLE
     Dosage: 300-MG-QD
     Route: 048
     Dates: start: 20150121
  52. TESSALON [Concomitant]
     Active Substance: BENZONATATE
     Indication: COUGH
     Dosage: 100-MG-BID
     Route: 048
     Dates: start: 20150122
  53. INVANZ [Concomitant]
     Active Substance: ERTAPENEM SODIUM
     Indication: URINARY TRACT INFECTION
     Dosage: 1000-MG-QD
     Route: 042
     Dates: start: 20150125

REACTIONS (1)
  - Diarrhoea [Recovered/Resolved]

NARRATIVE: CASE EVENT DATE: 20150127
